FAERS Safety Report 5397640-2 (Version None)
Quarter: 2007Q3

REPORT INFORMATION
  Report Type: 
  Country: None (occurrence: None)
  Receive Date: 20070723
  Receipt Date: 20070705
  Transmission Date: 20080115
  Serious: Yes (Hospitalization)
  Sender: FDA-Public Use
  Company Number: 2007JP003166

PATIENT
  Age: 75 Year
  Sex: Female

DRUGS (2)
  1. VESICARE [Suspect]
     Indication: POLLAKIURIA
     Dosage: 5 MG, /D, ORAL
     Dates: start: 20070622, end: 20070622
  2. CHOREITOU(HERBAL EXTRACT NOS) PER ORAL NOS [Suspect]
     Indication: POLLAKIURIA
     Dosage: 7.5 MG, /D, ORAL
     Route: 048
     Dates: start: 20070622, end: 20070622

REACTIONS (3)
  - ANAPHYLACTIC SHOCK [None]
  - FEELING ABNORMAL [None]
  - RECTAL ULCER [None]
